FAERS Safety Report 8549402-2 (Version None)
Quarter: 2012Q3

REPORT INFORMATION
  Report Type: 
  Country: None (occurrence: None)
  Receive Date: 20120730
  Receipt Date: 20120727
  Transmission Date: 20120928
  Serious: Yes (Other)
  Sender: FDA-Public Use
  Company Number: US-PFIZER INC-2012182884

PATIENT
  Sex: Male
  Weight: 70.295 kg

DRUGS (2)
  1. PRILOSEC [Concomitant]
     Indication: GASTROOESOPHAGEAL REFLUX DISEASE
     Dosage: UNK
  2. SUTENT [Suspect]
     Indication: GASTROINTESTINAL STROMAL TUMOUR
     Dosage: 37.5 MG (25MG AND A 12.5MG CAPSULE), 1X/DAY
     Route: 048
     Dates: start: 20120301, end: 20120718

REACTIONS (2)
  - VOLVULUS [None]
  - WEIGHT DECREASED [None]
